FAERS Safety Report 9242568 (Version 1)
Quarter: 2013Q2

REPORT INFORMATION
  Report Type: Report from Study
  Country: FR (occurrence: FR)
  Receive Date: 20130419
  Receipt Date: 20130419
  Transmission Date: 20140414
  Serious: Yes (Hospitalization)
  Sender: FDA-Public Use
  Company Number: FR-JNJFOC-20110411921

PATIENT
  Age: 22 Year
  Sex: Female
  Weight: 45 kg

DRUGS (7)
  1. INFLIXIMAB, RECOMBINANT [Suspect]
     Indication: CROHN^S DISEASE
     Route: 042
     Dates: start: 20071217
  2. INFLIXIMAB, RECOMBINANT [Suspect]
     Indication: CROHN^S DISEASE
     Route: 042
     Dates: start: 20070924
  3. INFLIXIMAB, RECOMBINANT [Suspect]
     Indication: CROHN^S DISEASE
     Route: 042
     Dates: start: 20071022
  4. IMUREL [Suspect]
     Indication: CROHN^S DISEASE
     Dates: start: 200809
  5. CORTANCYL [Concomitant]
     Indication: ABDOMINAL PAIN
     Dates: start: 20081010
  6. IDEOS [Concomitant]
     Dosage: ^1 OP^
     Dates: start: 20080303
  7. SPASFON LYOC [Concomitant]
     Dosage: ^2 OP^
     Dates: start: 20090116

REACTIONS (1)
  - Ileal stenosis [Recovered/Resolved]
